FAERS Safety Report 5512676-6 (Version None)
Quarter: 2007Q4

REPORT INFORMATION
  Report Type: 
  Country: None (occurrence: None)
  Receive Date: 20071112
  Receipt Date: 20071105
  Transmission Date: 20080405
  Serious: Yes (Hospitalization, Other)
  Sender: FDA-Public Use
  Company Number: US-BRISTOL-MYERS SQUIBB COMPANY-13969332

PATIENT
  Age: 20 Year
  Sex: Male

DRUGS (4)
  1. MEGESTROL ACETATE [Suspect]
     Indication: NEOPLASM MALIGNANT
  2. SULFAMETHOXAZOLE AND TRIMETHOPRIM [Suspect]
  3. MORPHINE [Suspect]
  4. FLUCONAZOLE [Suspect]

REACTIONS (13)
  - ABDOMINAL MASS [None]
  - ADRENAL INSUFFICIENCY [None]
  - BLOOD ALBUMIN DECREASED [None]
  - BLOOD TESTOSTERONE DECREASED [None]
  - DEPRESSED MOOD [None]
  - ERYTHEMA [None]
  - HAEMOGLOBIN DECREASED [None]
  - HEART RATE INCREASED [None]
  - MELAENA [None]
  - OEDEMA PERIPHERAL [None]
  - ORAL CANDIDIASIS [None]
  - PLATELET COUNT DECREASED [None]
  - PYREXIA [None]
